FAERS Safety Report 5038731-5 (Version None)
Quarter: 2006Q2

REPORT INFORMATION
  Report Type: 
  Country: None (occurrence: None)
  Receive Date: 20060623
  Receipt Date: 20060613
  Transmission Date: 20061013
  Serious: Yes (Hospitalization)
  Sender: FDA-Public Use
  Company Number: TCI2006A00754

PATIENT
  Age: 78 Year
  Sex: Female

DRUGS (7)
  1. ACTOS [Suspect]
     Indication: DIABETES MELLITUS
     Dosage: 15 MG (15 MG 1 IN 1D)
     Route: 048
     Dates: start: 20060202, end: 20060208
  2. BASEN OD TABLETS (VOGLIBOSE) [Concomitant]
  3. EUGLUCON (GLIBENCLAMIDE) [Concomitant]
  4. COMELIAN (DILAZEP DIHYDROCHLORIDE) [Concomitant]
  5. DILTIAZEM HYDROCHLORIDE [Concomitant]
  6. ENALAPRIL MALEATE [Concomitant]
  7. LENDORM [Concomitant]

REACTIONS (5)
  - CYANOSIS [None]
  - INTERSTITIAL LUNG DISEASE [None]
  - MALAISE [None]
  - PNEUMOTHORAX [None]
  - RESPIRATORY FAILURE [None]
